FAERS Safety Report 20740099 (Version 2)
Quarter: 2022Q2

REPORT INFORMATION
  Report Type: Report from Study
  Country: CN (occurrence: CN)
  Receive Date: 20220422
  Receipt Date: 20220428
  Transmission Date: 20220720
  Serious: Yes (Life-Threatening)
  Sender: FDA-Public Use
  Company Number: CN-sptaiwan-2022SMP000510

PATIENT
  Age: 28 Year
  Sex: Male
  Weight: 47.8 kg

DRUGS (9)
  1. LURASIDONE HYDROCHLORIDE [Suspect]
     Active Substance: LURASIDONE HYDROCHLORIDE
     Indication: Schizophrenia
     Dosage: 40 MG, QD
     Route: 048
     Dates: start: 20220321, end: 20220405
  2. LURASIDONE HYDROCHLORIDE [Suspect]
     Active Substance: LURASIDONE HYDROCHLORIDE
     Dosage: 80 MG, QD
     Route: 048
     Dates: start: 20220406, end: 20220410
  3. LURASIDONE HYDROCHLORIDE [Suspect]
     Active Substance: LURASIDONE HYDROCHLORIDE
     Dosage: 40 MG, QD
     Route: 048
     Dates: start: 20220412
  4. OLANZAPINE [Concomitant]
     Active Substance: OLANZAPINE
     Indication: Schizophrenia
     Dosage: 5 MG, QN
     Route: 048
     Dates: start: 20220314, end: 20220314
  5. OLANZAPINE [Concomitant]
     Active Substance: OLANZAPINE
     Dosage: 10 MG, QN
     Route: 048
     Dates: start: 20220315, end: 20220318
  6. LORAZEPAM [Concomitant]
     Active Substance: LORAZEPAM
     Indication: Sedation
     Dosage: 1 MG, QN
     Route: 048
     Dates: start: 20220314, end: 20220411
  7. LORAZEPAM [Concomitant]
     Active Substance: LORAZEPAM
     Indication: Sleep disorder
  8. GLUCUROLACTONE [Concomitant]
     Active Substance: GLUCUROLACTONE
     Indication: Blood bilirubin increased
     Dosage: 100 MG, TID
     Route: 048
     Dates: start: 20220314, end: 20220322
  9. INSULIN NOS [Concomitant]
     Active Substance: INSULIN NOS
     Indication: Mental disorder
     Dosage: 2 IU, QD
     Route: 030
     Dates: start: 20220314, end: 20220318

REACTIONS (1)
  - Suicide attempt [Recovered/Resolved]

NARRATIVE: CASE EVENT DATE: 20220411
